FAERS Safety Report 19552139 (Version 3)
Quarter: 2021Q4

REPORT INFORMATION
  Report Type: Spontaneous
  Country: ES (occurrence: ES)
  Receive Date: 20210715
  Receipt Date: 20211011
  Transmission Date: 20220303
  Serious: Yes (Hospitalization, Other)
  Sender: FDA-Public Use
  Company Number: ES-KYOWAKIRIN-2021BKK012481

PATIENT

DRUGS (9)
  1. POTELIGEO [Suspect]
     Active Substance: MOGAMULIZUMAB-KPKC
     Indication: Cutaneous T-cell lymphoma
     Dosage: CYCLICAL
     Route: 042
     Dates: start: 20200601, end: 20210315
  2. AMLODIPINE BESYLATE\OLMESARTAN MEDOXOMIL [Concomitant]
     Active Substance: AMLODIPINE BESYLATE\OLMESARTAN MEDOXOMIL
     Indication: Product used for unknown indication
     Dosage: 1 DF, IN A DAY
     Route: 048
     Dates: start: 20160518
  3. VALTREX [Concomitant]
     Active Substance: VALACYCLOVIR HYDROCHLORIDE
     Indication: Product used for unknown indication
     Dosage: 500 MG, IN A DAY
     Route: 048
     Dates: start: 20190913
  4. HYDROCORTISONE [Concomitant]
     Active Substance: HYDROCORTISONE
     Indication: Product used for unknown indication
     Dosage: UNK
     Route: 030
     Dates: start: 20201016
  5. ESOMEPRAZOL TEVA [Concomitant]
     Indication: Product used for unknown indication
     Dosage: 20 MG IN 12 HOURS
     Route: 048
     Dates: start: 20170713
  6. CRESTOR [Concomitant]
     Active Substance: ROSUVASTATIN CALCIUM
     Indication: Product used for unknown indication
     Dosage: 10 MG, IN A DAY
     Route: 048
     Dates: start: 20141216
  7. FOLIC ACID [Concomitant]
     Active Substance: FOLIC ACID
     Indication: Product used for unknown indication
     Dosage: 5 MG IN A DAY
     Route: 048
     Dates: start: 20190830
  8. PRISTIQ EXTENDED-RELEASE [Concomitant]
     Active Substance: DESVENLAFAXINE SUCCINATE
     Indication: Product used for unknown indication
     Dosage: 100 MG IN A DAY
     Route: 048
     Dates: start: 20170614
  9. ALPRAZOLAM [Concomitant]
     Active Substance: ALPRAZOLAM
     Indication: Product used for unknown indication
     Dosage: 0.5 MG IN A DAY
     Route: 048
     Dates: start: 20210713

REACTIONS (3)
  - Autoimmune haemolytic anaemia [Recovered/Resolved]
  - Photosensitivity reaction [Recovering/Resolving]
  - Rash erythematous [Recovering/Resolving]

NARRATIVE: CASE EVENT DATE: 20210316
